FAERS Safety Report 11533774 (Version 1)
Quarter: 2015Q3

REPORT INFORMATION
  Report Type: Spontaneous
  Country: IT (occurrence: IT)
  Receive Date: 20150922
  Receipt Date: 20150922
  Transmission Date: 20151125
  Serious: No
  Sender: FDA-Public Use
  Company Number: IT-GLENMARK PHARMACEUTICALS INC, USA.-2015GMK018205

PATIENT

DRUGS (2)
  1. VERAPAMIL [Suspect]
     Active Substance: VERAPAMIL HYDROCHLORIDE
     Indication: PEYRONIE^S DISEASE
     Dosage: 10 MG, WEEKLY FOR 12 WEEKS
     Route: 026
  2. ANTIOXIDANT                        /02147801/ [Concomitant]
     Active Substance: MINERALS\VITAMINS
     Indication: PEYRONIE^S DISEASE
     Dosage: UNK, ONE TABLET ONCE A DAY FOR 3 MONTHS
     Route: 048

REACTIONS (2)
  - Therapeutic response unexpected [Unknown]
  - Off label use [Unknown]
